FAERS Safety Report 4975623-1 (Version None)
Quarter: 2006Q1

REPORT INFORMATION
  Report Type: 
  Country: None (occurrence: None)
  Receive Date: 20060222
  Receipt Date: 20050311
  Transmission Date: 20060701
  Serious: Yes (Other)
  Sender: FDA-Public Use
  Company Number: HQWYE617107OCT04

PATIENT
  Age: 38 Year
  Sex: Female
  Weight: 68.1 kg

DRUGS (4)
  1. PROTONIX [Suspect]
     Indication: GASTROOESOPHAGEAL REFLUX DISEASE
     Dosage: SEE IMAGE
     Route: 048
     Dates: start: 20040920, end: 20041010
  2. PROTONIX [Suspect]
     Indication: GASTROOESOPHAGEAL REFLUX DISEASE
     Dosage: SEE IMAGE
     Route: 048
     Dates: start: 20030101
  3. CELEXA [Concomitant]
  4. ALPRAZOLAM [Concomitant]

REACTIONS (2)
  - DIARRHOEA [None]
  - PROCTALGIA [None]
